FAERS Safety Report 6646380-8 (Version None)
Quarter: 2010Q1

REPORT INFORMATION
  Report Type: 
  Country: None (occurrence: None)
  Receive Date: 20100322
  Receipt Date: 20100322
  Transmission Date: 20100710
  Serious: Yes (Disabling, Congenital Anomaly)
  Sender: FDA-Public Use
  Company Number: None

PATIENT
  Sex: Female

DRUGS (6)
  1. ZYPREXA [Suspect]
     Dates: start: 19971001, end: 19980401
  2. RISPERDAL [Suspect]
     Indication: ABORTION SPONTANEOUS
     Dosage: 4MG, 3MG, 2MG ONE A DAY
     Dates: start: 19971001, end: 19980401
  3. RISPERDAL [Suspect]
     Indication: PROPHYLAXIS
     Dosage: 4MG, 3MG, 2MG ONE A DAY
     Dates: start: 19971001, end: 19980401
  4. GEODON [Suspect]
  5. LEVAQUIN [Suspect]
  6. HINI VAC [Concomitant]

REACTIONS (10)
  - AMENORRHOEA [None]
  - BACTERIAL INFECTION [None]
  - COUGH [None]
  - FUNGAL INFECTION [None]
  - NASOPHARYNGITIS [None]
  - ORAL INFECTION [None]
  - PHARYNGITIS STREPTOCOCCAL [None]
  - PNEUMONIA [None]
  - UPPER RESPIRATORY TRACT INFECTION [None]
  - VIRAL INFECTION [None]
